FAERS Safety Report 23188171 (Version 26)
Quarter: 2025Q4

REPORT INFORMATION
  Report Type: Report from Study
  Country: US (occurrence: US)
  Receive Date: 20231115
  Receipt Date: 20251218
  Transmission Date: 20260118
  Serious: Yes (Hospitalization, Other)
  Sender: PFIZER
  Company Number: US-PFIZER INC-PV202300182220

PATIENT
  Age: 77 Year
  Sex: Female
  Weight: 79.365 kg

DRUGS (28)
  1. IBRANCE [Suspect]
     Active Substance: PALBOCICLIB
     Indication: Breast cancer metastatic
     Dosage: 125 MG
     Route: 048
  2. IBRANCE [Suspect]
     Active Substance: PALBOCICLIB
     Dosage: 100 MG, 1X/DAY
     Route: 048
     Dates: start: 20230917, end: 20231007
  3. IBRANCE [Suspect]
     Active Substance: PALBOCICLIB
     Dosage: 125 MG
     Route: 048
     Dates: start: 20230917, end: 20231007
  4. IBRANCE [Suspect]
     Active Substance: PALBOCICLIB
     Dosage: 21 DAYS OF 28 DAYS
     Route: 048
     Dates: start: 20231203, end: 20231214
  5. IBRANCE [Suspect]
     Active Substance: PALBOCICLIB
     Dosage: 21 DAYS OF 28 DAYS
     Route: 048
     Dates: start: 20240107, end: 20240913
  6. IBRANCE [Suspect]
     Active Substance: PALBOCICLIB
     Dosage: 1 TABLET ORALLY, 3 DAYS PER WEEK FOR 3 WEEKS, THEN TAKE ONE WEEK OFF/21 DAYS OF 28 DAYS
     Route: 048
     Dates: start: 20241013, end: 2024
  7. IBRANCE [Suspect]
     Active Substance: PALBOCICLIB
     Dosage: 1 TABLET, 3 DAYS PER WEEK
     Route: 048
     Dates: start: 2024
  8. IBRANCE [Suspect]
     Active Substance: PALBOCICLIB
     Dosage: 1 TABLET, 3 DAYS PER WEEK FOR 3 WEEKS, THEN TAKE ONE WEEK OFF
     Route: 048
  9. IBRANCE [Suspect]
     Active Substance: PALBOCICLIB
     Dosage: 3 DAYS A WEEK OF 21 DAYS CYCLE/1 TABLET 3 DAYS PER WEEK FOR 3 WEEKS, THEN 1 WEEK OFF
     Route: 048
     Dates: start: 2024
  10. IBRANCE [Suspect]
     Active Substance: PALBOCICLIB
     Dosage: TAKE 1 TABLET BY MOUTH THREE DAYS PER WEEK FOR THREE WEEKS THEN ONE WEEKS OFF
     Route: 048
     Dates: start: 20251104
  11. LETROZOLE [Suspect]
     Active Substance: LETROZOLE
     Dosage: UNK
     Dates: end: 20240816
  12. LETROZOLE [Suspect]
     Active Substance: LETROZOLE
     Dosage: UNK
     Dates: end: 20240913
  13. LETROZOLE [Suspect]
     Active Substance: LETROZOLE
     Dosage: 2.5 MG, DAILY
     Route: 048
     Dates: end: 20241011
  14. XGEVA [Suspect]
     Active Substance: DENOSUMAB
     Dosage: UNK
     Dates: end: 20241011
  15. XGEVA [Suspect]
     Active Substance: DENOSUMAB
     Dosage: UNK
     Dates: end: 20241013
  16. LEVOTHYROXINE [Concomitant]
     Active Substance: LEVOTHYROXINE
     Dosage: 25 UG, 1X/DAY, 25 MCG TABLET PO (PER ORAL) QD (ONCE A DAY)
     Route: 048
  17. LEVOTHYROXINE [Concomitant]
     Active Substance: LEVOTHYROXINE
     Dosage: 50 UG, DAILY (1 CAPSULE ORALLY EVERY DAY)
     Route: 048
  18. VITAMIN B COMPLEX [Concomitant]
     Active Substance: CYANOCOBALAMIN\DEXPANTHENOL\NIACINAMIDE\PYRIDOXINE HYDROCHLORIDE\RIBOFLAVIN 5^-PHOSPHATE SODIUM\THIA
     Dosage: UNK, DAILY
     Route: 048
  19. VITAMIN B COMPLEX [Concomitant]
     Active Substance: CYANOCOBALAMIN\DEXPANTHENOL\NIACINAMIDE\PYRIDOXINE HYDROCHLORIDE\RIBOFLAVIN 5^-PHOSPHATE SODIUM\THIA
     Dosage: UNK, 1X/DAY
     Route: 048
  20. XARELTO [Concomitant]
     Active Substance: RIVAROXABAN
     Dosage: UNK, DAILY
     Route: 048
  21. XARELTO [Concomitant]
     Active Substance: RIVAROXABAN
     Dosage: 20 MG, 1X/DAY, TABLET PO (PER ORAL) QD (ONCE A DAY)
     Route: 048
  22. FUROSEMIDE [Concomitant]
     Active Substance: FUROSEMIDE
     Dosage: UNK, DAILY
     Route: 048
  23. FUROSEMIDE [Concomitant]
     Active Substance: FUROSEMIDE
     Dosage: 20 MG, 1X/DAY
     Route: 048
  24. ALLOPURINOL [Concomitant]
     Active Substance: ALLOPURINOL
     Dosage: 300 MG, 1X/DAY, 300 MG TABLET PO (PER ORAL) QD (ONCE A DAY)
     Route: 048
  25. ALLOPURINOL [Concomitant]
     Active Substance: ALLOPURINOL
     Dosage: 300 MG, DAILY, 1 TABLET ORALLY DAILY
     Route: 048
  26. VERAPAMIL [Concomitant]
     Active Substance: VERAPAMIL HYDROCHLORIDE
     Dosage: UNK, DAILY
     Route: 048
  27. VERAPAMIL [Concomitant]
     Active Substance: VERAPAMIL HYDROCHLORIDE
     Dosage: PO (PER ORAL) QD (ONCE A DAY)
     Route: 048
  28. ANASTROZOLE [Concomitant]
     Active Substance: ANASTROZOLE
     Dosage: 1 MILLIGRAM TABLET EVERY DAY
     Route: 048
     Dates: start: 20241205

REACTIONS (27)
  - Immune system disorder [Unknown]
  - White blood cell count decreased [Unknown]
  - Alopecia [Not Recovered/Not Resolved]
  - Stomatitis [Recovered/Resolved]
  - Decreased appetite [Recovered/Resolved]
  - Neutropenia [Recovered/Resolved]
  - Metastases to spine [Unknown]
  - Atrial fibrillation [Recovering/Resolving]
  - Fatigue [Recovered/Resolved]
  - Nasopharyngitis [Recovered/Resolved]
  - Diarrhoea [Recovered/Resolved]
  - Constipation [Unknown]
  - Pain in extremity [Not Recovered/Not Resolved]
  - Arthralgia [Recovered/Resolved]
  - Cough [Unknown]
  - Myalgia [Unknown]
  - Blood pressure systolic increased [Unknown]
  - Pain [Recovering/Resolving]
  - Memory impairment [Recovered/Resolved]
  - Dyspnoea [Unknown]
  - Hypoaesthesia [Unknown]
  - Depression [Unknown]
  - Anxiety [Recovering/Resolving]
  - Feeling cold [Unknown]
  - Nausea [Unknown]
  - Stomatitis [Unknown]
  - Off label use [Unknown]

NARRATIVE: CASE EVENT DATE: 20230917
